FAERS Safety Report 14784239 (Version 1)
Quarter: 2018Q2

REPORT INFORMATION
  Report Type: Report from Study
  Country: DE (occurrence: DE)
  Receive Date: 20180420
  Receipt Date: 20180420
  Transmission Date: 20180711
  Serious: Yes (Other)
  Sender: FDA-Public Use
  Company Number: DE-TEVA-2018-DE-883089

PATIENT
  Age: 38 Year
  Sex: Female

DRUGS (1)
  1. COPAXONE [Suspect]
     Active Substance: GLATIRAMER ACETATE
     Indication: MULTIPLE SCLEROSIS
     Dates: start: 20150605

REACTIONS (5)
  - Injection site haematoma [Unknown]
  - Injection site erythema [Unknown]
  - Injection site pustule [Unknown]
  - Injection site pain [Unknown]
  - Injection site necrosis [Unknown]

NARRATIVE: CASE EVENT DATE: 201803
